FAERS Safety Report 4723968-2 (Version None)
Quarter: 2005Q3

REPORT INFORMATION
  Report Type: 
  Country: None (occurrence: None)
  Receive Date: 20050721
  Receipt Date: 20050711
  Transmission Date: 20060218
  Serious: Yes (Hospitalization, Other)
  Sender: FDA-Public Use
  Company Number: 9932141

PATIENT
  Age: 44 Year
  Sex: Female
  Weight: 47.6277 kg

DRUGS (5)
  1. SERTRALINE (SERTRALINE) [Suspect]
     Indication: FIBROMYALGIA
     Dosage: 50 MG DAILY, ORAL
     Route: 048
     Dates: start: 19930101, end: 20030201
  2. SYNTHROID [Concomitant]
  3. LORCET-HD [Concomitant]
  4. PRILOSEC [Concomitant]
  5. ALL OTHER THERAPEUTIC PRODUCT [Concomitant]

REACTIONS (29)
  - ABDOMINAL DISTENSION [None]
  - AMNESIA [None]
  - ANXIETY [None]
  - CONDITION AGGRAVATED [None]
  - CONSTIPATION [None]
  - DEPRESSION [None]
  - DISORIENTATION [None]
  - DIZZINESS [None]
  - FIBROMYALGIA [None]
  - FLUID RETENTION [None]
  - GASTRIC DILATATION [None]
  - GASTRIC HAEMORRHAGE [None]
  - GASTROOESOPHAGEAL REFLUX DISEASE [None]
  - HAEMATOCHEZIA [None]
  - HERNIA [None]
  - LOSS OF CONSCIOUSNESS [None]
  - NAUSEA [None]
  - NIGHT SWEATS [None]
  - NIGHTMARE [None]
  - OEDEMA PERIPHERAL [None]
  - STOMACH DISCOMFORT [None]
  - SYNCOPE [None]
  - THERAPY NON-RESPONDER [None]
  - TREMOR [None]
  - UNEVALUABLE EVENT [None]
  - VISION BLURRED [None]
  - VISUAL DISTURBANCE [None]
  - VOMITING [None]
  - WEIGHT INCREASED [None]
